FAERS Safety Report 5196013-5 (Version None)
Quarter: 2006Q4

REPORT INFORMATION
  Report Type: 
  Country: None (occurrence: None)
  Receive Date: 20061227
  Receipt Date: 20061219
  Transmission Date: 20070319
  Serious: Yes (Hospitalization, Other)
  Sender: FDA-Public Use
  Company Number: 2006JP005014

PATIENT
  Age: 80 Year
  Sex: Male
  Weight: 55 kg

DRUGS (7)
  1. VESICARE [Suspect]
     Indication: BENIGN PROSTATIC HYPERPLASIA
     Dosage: 5 MG, UID/QD, ORAL
     Route: 048
     Dates: start: 20061124, end: 20061203
  2. LIPITOR [Concomitant]
  3. EVIPROSTAT (CHIMAPHILA UMBELLATA, MANGANESE CHLORIDE, EQUISETUM ARVENS [Concomitant]
  4. SUNRYTHM (PILSICAINIDE HYDROCHLORIDE) [Concomitant]
  5. WARFARIN SODIUM [Concomitant]
  6. DIGOXIN [Concomitant]
  7. LASIX [Concomitant]

REACTIONS (2)
  - ACUTE MYOCARDIAL INFARCTION [None]
  - ANGINA UNSTABLE [None]
